FAERS Safety Report 12701250 (Version 1)
Quarter: 2016Q3

REPORT INFORMATION
  Report Type: Spontaneous
  Country: BR (occurrence: BR)
  Receive Date: 20160831
  Receipt Date: 20160831
  Transmission Date: 20161109
  Serious: Yes (Other)
  Sender: FDA-Public Use
  Company Number: BR-AMGEN-BRASP2016111049

PATIENT
  Age: 59 Year
  Sex: Female

DRUGS (7)
  1. PROPRANOLOL [Concomitant]
     Active Substance: PROPRANOLOL\PROPRANOLOL HYDROCHLORIDE
     Dosage: UNK
  2. INSULIN [Concomitant]
     Active Substance: INSULIN NOS
     Dosage: UNK
     Dates: start: 2014
  3. METHOTREXATE SODIUM. [Suspect]
     Active Substance: METHOTREXATE SODIUM
     Indication: PSORIASIS
     Dosage: 15 MG, 1X/DAY
     Route: 065
     Dates: start: 201603
  4. IMIPRAMINE [Concomitant]
     Active Substance: IMIPRAMINE
     Dosage: UNK
  5. DIAZEPAM. [Concomitant]
     Active Substance: DIAZEPAM
     Dosage: UNK
  6. ENBREL [Suspect]
     Active Substance: ETANERCEPT
     Indication: PSORIASIS
     Dosage: 25 MG, WEEKLY
     Route: 065
     Dates: start: 201603
  7. GLIFAGE [Concomitant]
     Active Substance: METFORMIN HYDROCHLORIDE
     Dosage: UNK
     Dates: start: 2014

REACTIONS (6)
  - Arthralgia [Not Recovered/Not Resolved]
  - Wound [Recovered/Resolved]
  - Dysgeusia [Not Recovered/Not Resolved]
  - Pain in extremity [Not Recovered/Not Resolved]
  - Dry skin [Recovered/Resolved]
  - Liver injury [Not Recovered/Not Resolved]

NARRATIVE: CASE EVENT DATE: 2016
